FAERS Safety Report 4524010-9 (Version None)
Quarter: 2004Q4

REPORT INFORMATION
  Report Type: 
  Country: None (occurrence: None)
  Receive Date: 20041209
  Receipt Date: 20041201
  Transmission Date: 20050328
  Serious: Yes (Other)
  Sender: FDA-Public Use
  Company Number: 200410748BNE

PATIENT
  Age: 17 Year
  Sex: Male

DRUGS (3)
  1. CIPROFLOXACIN [Suspect]
     Indication: EAR INFECTION
     Dosage: 250 MG, TOTAL DAILY, ORAL
     Route: 048
     Dates: start: 20041117
  2. IBUPROFEN [Concomitant]
  3. GENTAMICIN [Concomitant]

REACTIONS (5)
  - DRUG HYPERSENSITIVITY [None]
  - OROPHARYNGEAL SWELLING [None]
  - RASH GENERALISED [None]
  - SWELLING FACE [None]
  - SWOLLEN TONGUE [None]
